FAERS Safety Report 8006729-0 (Version None)
Quarter: 2011Q4

REPORT INFORMATION
  Report Type: 
  Country: None (occurrence: None)
  Receive Date: 20111227
  Receipt Date: 20111216
  Transmission Date: 20120403
  Serious: Yes (Hospitalization)
  Sender: FDA-Public Use
  Company Number: US-BAYER-2011-053130

PATIENT
  Age: 47 Year
  Sex: Female
  Weight: 56.689 kg

DRUGS (4)
  1. MULTI-VITAMINS [Concomitant]
  2. YASMIN [Suspect]
     Indication: CONTRACEPTION
     Dosage: UNK
     Route: 048
     Dates: start: 20051228, end: 20080827
  3. DROSPIRENONE AND ETHINYL ESTRADIOL [Suspect]
     Indication: CONTRACEPTION
     Dosage: UNK
     Route: 048
     Dates: start: 20080827, end: 20090602
  4. YAZ [Suspect]
     Route: 048

REACTIONS (8)
  - PULMONARY EMBOLISM [None]
  - PAIN [None]
  - LUNG INFILTRATION [None]
  - PULMONARY INFARCTION [None]
  - INJURY [None]
  - DEEP VEIN THROMBOSIS [None]
  - PLEURITIC PAIN [None]
  - DYSPNOEA [None]
